FAERS Safety Report 18961576 (Version 1)
Quarter: 2021Q1

REPORT INFORMATION
  Report Type: Spontaneous
  Country: US (occurrence: US)
  Receive Date: 20210303
  Receipt Date: 20210303
  Transmission Date: 20210420
  Serious: Yes (Other)
  Sender: FDA-Public Use
  Company Number: US-RECORDATI RARE DISEASES INC.-2021000640

PATIENT

DRUGS (1)
  1. PANHEMATIN [Suspect]
     Active Substance: HEMIN
     Indication: PORPHYRIA ACUTE
     Dosage: UNK
     Route: 065

REACTIONS (3)
  - Hepatic cirrhosis [Unknown]
  - Off label use [Unknown]
  - Iron overload [Unknown]
